FAERS Safety Report 7531428-9 (Version None)
Quarter: 2011Q2

REPORT INFORMATION
  Report Type: 
  Country: None (occurrence: None)
  Receive Date: 20110531
  Receipt Date: 20110516
  Transmission Date: 20111010
  Serious: Yes (Hospitalization)
  Sender: FDA-Public Use
  Company Number: 1000021168

PATIENT
  Age: 62 Year
  Sex: Male

DRUGS (1)
  1. ROFLUMILAST (ROFLUMILAST) (500 MICROGRAM, TABLETS) [Suspect]
     Indication: CHRONIC OBSTRUCTIVE PULMONARY DISEASE
     Dosage: ORAL
     Route: 048
     Dates: start: 20101213, end: 20110401

REACTIONS (3)
  - VERTIGO [None]
  - TACHYCARDIA [None]
  - HYPOTENSION [None]
